FAERS Safety Report 10214370 (Version 1)
Quarter: 2014Q2

REPORT INFORMATION
  Report Type: Spontaneous
  Country: FR (occurrence: FR)
  Receive Date: 20140603
  Receipt Date: 20140603
  Transmission Date: 20141212
  Serious: Yes (Other)
  Sender: FDA-Public Use
  Company Number: FR-TEVA-484187ISR

PATIENT
  Age: 30 Year
  Sex: Female

DRUGS (2)
  1. LEELOO [Suspect]
     Indication: CONTRACEPTION
     Dosage: 1 DOSAGE FORMS DAILY;
     Route: 048
     Dates: start: 201309
  2. GILENYA 0.5MG [Suspect]
     Indication: MULTIPLE SCLEROSIS
     Dosage: 1 DOSAGE FORMS DAILY;
     Route: 048
     Dates: start: 20130621

REACTIONS (4)
  - Anogenital warts [Not Recovered/Not Resolved]
  - Papilloma viral infection [Not Recovered/Not Resolved]
  - Cervix neoplasm [Not Recovered/Not Resolved]
  - Vulvovaginal mycotic infection [Not Recovered/Not Resolved]
